FAERS Safety Report 5222493-2 (Version None)
Quarter: 2007Q1

REPORT INFORMATION
  Report Type: 
  Country: None (occurrence: None)
  Receive Date: 20070129
  Receipt Date: 20060921
  Transmission Date: 20070707
  Serious: Yes (Hospitalization)
  Sender: FDA-Public Use
  Company Number: US-BRISTOL-MYERS SQUIBB COMPANY-13517735

PATIENT
  Age: 44 Year
  Sex: Female
  Weight: 125 kg

DRUGS (1)
  1. CARDIOLITE [Suspect]
     Indication: CARDIAC STRESS TEST
     Dosage: 1 DOSE WAS GIVEN ON EACH OF 2 CONSECUTIVE DAYS.
     Route: 042
     Dates: start: 20060920, end: 20060921

REACTIONS (2)
  - CHEST PAIN [None]
  - DYSPNOEA [None]
